FAERS Safety Report 12872611 (Version 7)
Quarter: 2017Q1

REPORT INFORMATION
  Report Type: Report from Study
  Country: AR (occurrence: AR)
  Receive Date: 20161021
  Receipt Date: 20170216
  Transmission Date: 20170428
  Serious: Yes (Death, Life-Threatening, Hospitalization, Disabling)
  Sender: FDA-Public Use
  Company Number: AR-ROCHE-1843304

PATIENT
  Age: 71 Year
  Sex: Male
  Weight: 74 kg

DRUGS (2)
  1. CAPECITABINE. [Suspect]
     Active Substance: CAPECITABINE
     Indication: OESOPHAGEAL ADENOCARCINOMA
     Dosage: ON DAYS 1-14 OF 21 DAY CYCLE?MOST RECENT DOSE PRIOR TO THE EVENTS: 07/SEP/2016
     Route: 048
     Dates: start: 20160810, end: 20160907
  2. CISPLATIN. [Suspect]
     Active Substance: CISPLATIN
     Indication: OESOPHAGEAL ADENOCARCINOMA
     Dosage: MOST RECENT DOSE PRIOR TO THE EVENTS: 07/SEP/2016
     Route: 042
     Dates: start: 20160810, end: 20160907

REACTIONS (4)
  - Hepatic failure [Fatal]
  - Fatigue [Unknown]
  - Acute kidney injury [Not Recovered/Not Resolved]
  - Pyrexia [Recovered/Resolved]

NARRATIVE: CASE EVENT DATE: 20160921
